FAERS Safety Report 5228401-2 (Version None)
Quarter: 2007Q1

REPORT INFORMATION
  Report Type: 
  Country: None (occurrence: None)
  Receive Date: 20070205
  Receipt Date: 20070129
  Transmission Date: 20070707
  Serious: Yes (Hospitalization, Other)
  Sender: FDA-Public Use
  Company Number: HQWYE591926AUG04

PATIENT
  Sex: Female

DRUGS (5)
  1. PREMARIN [Suspect]
  2. NORETHINDRONE ACETATE [Suspect]
  3. ESTRADIOL [Suspect]
  4. PROVERA [Suspect]
  5. ZOMEPIRAC [Concomitant]

REACTIONS (1)
  - BREAST CANCER METASTATIC [None]
